FAERS Safety Report 7712668-2 (Version None)
Quarter: 2011Q3

REPORT INFORMATION
  Report Type: 
  Country: None (occurrence: None)
  Receive Date: 20110826
  Receipt Date: 20110815
  Transmission Date: 20111222
  Serious: Yes (Hospitalization, Other)
  Sender: FDA-Public Use
  Company Number: US-MERCK-1103USA03933

PATIENT
  Age: 59 Year
  Sex: Female
  Weight: 64 kg

DRUGS (11)
  1. FOSAMAX [Suspect]
     Route: 048
     Dates: start: 20020301, end: 20100103
  2. SPRING VALLEY LUTEIN VISION [Concomitant]
     Route: 065
     Dates: start: 19950101
  3. FOLIC ACID [Concomitant]
     Route: 065
     Dates: start: 19960101
  4. NEXIUM [Concomitant]
     Route: 065
     Dates: start: 19960101
  5. ONE-A-DAY ESSENTIAL VITAMINS [Concomitant]
     Route: 065
     Dates: start: 19910101
  6. B COMPLEX 100 [Concomitant]
     Route: 065
     Dates: start: 19960101
  7. FOSAMAX [Suspect]
     Route: 048
     Dates: start: 20090330
  8. HORMONES (UNSPECIFIED) [Concomitant]
     Route: 065
  9. ALENDRONATE SODIUM [Suspect]
     Indication: OSTEOPOROSIS
     Route: 048
     Dates: start: 20080807, end: 20100103
  10. FOSAMAX [Suspect]
     Indication: OSTEOPOROSIS
     Route: 048
     Dates: start: 19980101
  11. FOSAMAX [Suspect]
     Route: 048
     Dates: start: 20000323, end: 20011201

REACTIONS (52)
  - BREAST DISORDER [None]
  - SYNOVIAL CYST [None]
  - LUNG DISORDER [None]
  - TARSAL TUNNEL SYNDROME [None]
  - SPINAL DISORDER [None]
  - CONTUSION [None]
  - FEMUR FRACTURE [None]
  - CONVULSION [None]
  - POOR QUALITY SLEEP [None]
  - LUNG NEOPLASM [None]
  - BACK PAIN [None]
  - HYPERLIPIDAEMIA [None]
  - THROMBOSIS [None]
  - METAL POISONING [None]
  - INJURY [None]
  - HYPERTENSION [None]
  - HIATUS HERNIA [None]
  - ANAEMIA POSTOPERATIVE [None]
  - CARPAL TUNNEL SYNDROME [None]
  - DRUG ADMINISTRATION ERROR [None]
  - SINUSITIS [None]
  - INTESTINAL PERFORATION [None]
  - URTICARIA [None]
  - FALL [None]
  - ANKLE FRACTURE [None]
  - DIARRHOEA [None]
  - DEPRESSION [None]
  - BURSITIS [None]
  - TOXIC NEUROPATHY [None]
  - LIBIDO DECREASED [None]
  - COLONIC POLYP [None]
  - CUBITAL TUNNEL SYNDROME [None]
  - ADVERSE DRUG REACTION [None]
  - FOOT FRACTURE [None]
  - FLATULENCE [None]
  - DIVERTICULUM [None]
  - ROTATOR CUFF SYNDROME [None]
  - NEUROPATHY PERIPHERAL [None]
  - ULCER [None]
  - CHEMICAL POISONING [None]
  - ARTERIOSCLEROSIS [None]
  - ARTHRALGIA [None]
  - DEEP VEIN THROMBOSIS [None]
  - NERVOUSNESS [None]
  - GAIT DISTURBANCE [None]
  - GASTROINTESTINAL DISORDER [None]
  - PULMONARY EMBOLISM [None]
  - DRUG HYPERSENSITIVITY [None]
  - PLEURAL DISORDER [None]
  - TRIGGER FINGER [None]
  - TENOSYNOVITIS STENOSANS [None]
  - BLOOD CHOLESTEROL INCREASED [None]
